FAERS Safety Report 8493162-0 (Version None)
Quarter: 2012Q3

REPORT INFORMATION
  Report Type: 
  Country: None (occurrence: None)
  Receive Date: 20120706
  Receipt Date: 20120627
  Transmission Date: 20120928
  Serious: Yes (Other)
  Sender: FDA-Public Use
  Company Number: US-ASTRAZENECA-2012SE10473

PATIENT
  Age: 79 Year
  Sex: Female

DRUGS (2)
  1. ARIMIDEX [Suspect]
     Route: 048
  2. CRESTOR [Suspect]
     Route: 048

REACTIONS (8)
  - TOOTH DISORDER [None]
  - CONFUSIONAL STATE [None]
  - MEMORY IMPAIRMENT [None]
  - POOR QUALITY SLEEP [None]
  - HEARING IMPAIRED [None]
  - SUDDEN ONSET OF SLEEP [None]
  - NEOPLASM MALIGNANT [None]
  - SPEECH DISORDER [None]
